FAERS Safety Report 9166349 (Version 1)
Quarter: 2013Q1

REPORT INFORMATION
  Report Type: Spontaneous
  Country: US (occurrence: US)
  Receive Date: 20130315
  Receipt Date: 20130315
  Transmission Date: 20140127
  Serious: Yes (Death)
  Sender: FDA-Public Use
  Company Number: US-AMGEN-USASP2013017038

PATIENT
  Age: 57 Year
  Sex: Female

DRUGS (19)
  1. JANUVIA [Concomitant]
     Dosage: 100 MG, UNK
  2. PROTONIX [Concomitant]
     Dosage: 40 MG, UNK
  3. PLAQUENIL                          /00072602/ [Concomitant]
     Dosage: 200 MG, UNK
  4. MULTAQ [Concomitant]
     Dosage: 400 MG, UNK
  5. LASIX                              /00032601/ [Concomitant]
     Dosage: 40 MG, UNK
  6. ZOLOFT [Concomitant]
     Dosage: 50 MG, UNK
  7. TEKTURNA [Concomitant]
     Dosage: 150 MG, UNK
  8. GLUCOVANCE [Concomitant]
     Dosage: 2.5-500 UNK, UNK
  9. ARAVA [Concomitant]
     Dosage: 10 MG, UNK
  10. METOPROLOL [Concomitant]
     Dosage: 25 MG, ER
  11. CRESTOR [Concomitant]
     Dosage: 10 MG, UNK
  12. PLAVIX [Concomitant]
     Dosage: 75 MG, UNK
  13. PREDNISOLONE [Concomitant]
     Dosage: 5 MG, UNK
  14. ATROVENT [Concomitant]
     Dosage: 18 MCG/AC, UNK
  15. PROAIR HFA [Concomitant]
     Dosage: UNK
  16. MULTIVITAMINS, PLAIN [Concomitant]
     Dosage: UNK
  17. FLOVENT [Concomitant]
     Dosage: 110 MUG, UNK
  18. ASPIRIN CHILDREN [Concomitant]
     Dosage: 81 MG, UNK
  19. ENBREL [Suspect]
     Indication: PRODUCT USED FOR UNKNOWN INDICATION
     Dosage: 50 MG, QWK
     Route: 058

REACTIONS (1)
  - Death [Fatal]
